FAERS Safety Report 20491414 (Version 1)
Quarter: 2022Q1

REPORT INFORMATION
  Report Type: Spontaneous
  Country: DE (occurrence: None)
  Receive Date: 20220218
  Receipt Date: 20220218
  Transmission Date: 20220424
  Serious: Yes (Hospitalization)
  Sender: FDA-Public Use
  Company Number: DE-ROCHE-2995563

PATIENT
  Sex: Male

DRUGS (4)
  1. CASIRIVIMAB\IMDEVIMAB [Suspect]
     Active Substance: CASIRIVIMAB\IMDEVIMAB
     Indication: COVID-19
     Dosage: 2 X 600 MG
     Route: 065
     Dates: start: 20211220
  2. OBINUTUZUMAB [Suspect]
     Active Substance: OBINUTUZUMAB
     Indication: Lymphoma
     Dosage: IN COMBINATION WITH BENDAMUSTIN
     Route: 042
     Dates: start: 202109
  3. COMIRNATY [Suspect]
     Active Substance: TOZINAMERAN
     Indication: Immunisation
     Dosage: TWO VACCINATIONS
     Route: 065
  4. BENDAMUSTINE;OBINUTUZUMAB [Concomitant]
     Indication: Lymphoma
     Dosage: IN COMBINATION WITH OBINUTUZUMAB
     Dates: start: 202109

REACTIONS (2)
  - SARS-CoV-2 antibody test negative [Unknown]
  - COVID-19 [Recovering/Resolving]

NARRATIVE: CASE EVENT DATE: 20211120
